FAERS Safety Report 9630755 (Version 1)
Quarter: 2013Q4

REPORT INFORMATION
  Report Type: Spontaneous
  Country: US (occurrence: None)
  Receive Date: 20131016
  Receipt Date: 20131016
  Transmission Date: 20140711
  Serious: No
  Sender: FDA-Public Use
  Company Number: None

PATIENT
  Age: 56 Year
  Sex: Male
  Weight: 98 kg

DRUGS (2)
  1. FENTANYL [Suspect]
     Indication: BACK PAIN
     Dosage: APPLY TO BACK
     Dates: start: 20130924, end: 20131014
  2. FENTANYL [Suspect]
     Indication: NECK PAIN
     Dosage: APPLY TO BACK
     Dates: start: 20130924, end: 20131014

REACTIONS (2)
  - Application site pruritus [None]
  - Application site swelling [None]
